FAERS Safety Report 13064716 (Version 1)
Quarter: 2016Q4

REPORT INFORMATION
  Report Type: Spontaneous
  Country: FR (occurrence: FR)
  Receive Date: 20161227
  Receipt Date: 20161227
  Transmission Date: 20170207
  Serious: Yes (Death, Life-Threatening)
  Sender: FDA-Public Use
  Company Number: FR-PFIZER INC-2016583944

PATIENT
  Age: 36 Year
  Sex: Male

DRUGS (10)
  1. SUFENTANIL [Suspect]
     Active Substance: SUFENTANIL
     Indication: ANAESTHESIA
     Dosage: 15 UG, SINGLE
     Route: 042
     Dates: start: 20161205, end: 20161205
  2. NAROPEINE [Concomitant]
     Active Substance: ROPIVACAINE HYDROCHLORIDE
     Indication: ANAESTHESIA
     Dosage: 15 ML, SINGLE
     Route: 042
     Dates: start: 20161205, end: 20161205
  3. TOPALGIC [Concomitant]
     Active Substance: TRAMADOL
     Indication: ANALGESIC THERAPY
     Dosage: UNK, AS NEEDED
     Route: 048
  4. PARACETAMOL [Concomitant]
     Active Substance: ACETAMINOPHEN
     Indication: PAIN PROPHYLAXIS
     Dosage: 1 G, SINGLE
     Dates: start: 20161205, end: 20161205
  5. CONTRAMAL [Concomitant]
     Active Substance: TRAMADOL HYDROCHLORIDE
     Indication: PAIN PROPHYLAXIS
     Dosage: 100 MG, SINGLE
     Dates: start: 20161205, end: 20161205
  6. CELEBREX [Concomitant]
     Active Substance: CELECOXIB
     Indication: PAIN PROPHYLAXIS
     Dosage: 200 MG, SINGLE
     Dates: start: 20161205, end: 20161205
  7. ATRACURIUM BESILATE [Suspect]
     Active Substance: ATRACURIUM BESYLATE
     Indication: NEUROMUSCULAR BLOCKING THERAPY
     Dosage: 50 MG, SINGLE
     Route: 041
     Dates: start: 20161205, end: 20161205
  8. LEXOMIL ROCHE [Concomitant]
     Active Substance: BROMAZEPAM
     Dosage: 3 MG, DAILY
     Route: 048
  9. DIPRIVAN [Suspect]
     Active Substance: PROPOFOL
     Indication: ANAESTHESIA
     Dosage: 350 MG, SINGLE
     Route: 042
     Dates: start: 20161205, end: 20161205
  10. ACUPAN [Concomitant]
     Active Substance: NEFOPAM HYDROCHLORIDE
     Indication: PAIN PROPHYLAXIS
     Dosage: 20 MG, SINGLE
     Dates: start: 20161205, end: 20161205

REACTIONS (3)
  - Anaphylactic reaction [Fatal]
  - Multiple organ dysfunction syndrome [Fatal]
  - Cardio-respiratory arrest [Fatal]

NARRATIVE: CASE EVENT DATE: 20161205
